FAERS Safety Report 26000565 (Version 1)
Quarter: 2025Q4

REPORT INFORMATION
  Report Type: Spontaneous
  Country: US (occurrence: None)
  Receive Date: 20251104
  Receipt Date: 20251104
  Transmission Date: 20260118
  Serious: Yes (Hospitalization, Other)
  Sender: FDA-CTU
  Company Number: None

PATIENT
  Age: 64 Year
  Sex: Female
  Weight: 112.05 kg

DRUGS (2)
  1. GRANIX [Suspect]
     Active Substance: TBO-FILGRASTIM
     Indication: White blood cell count abnormal
     Dosage: OTHER QUANTITY : 1 INJECTION(S);?FREQUENCY : DAILY;?OTHER ROUTE : INJECTION;?
     Route: 050
     Dates: start: 20251030, end: 20251030
  2. SIMVASTATIN [Concomitant]
     Active Substance: SIMVASTATIN

REACTIONS (3)
  - Back pain [None]
  - Visual impairment [None]
  - Loss of consciousness [None]

NARRATIVE: CASE EVENT DATE: 20251030
